FAERS Safety Report 8310085-8 (Version None)
Quarter: 2012Q2

REPORT INFORMATION
  Report Type: 
  Country: None (occurrence: None)
  Receive Date: 20120425
  Receipt Date: 20120416
  Transmission Date: 20120825
  Serious: Yes (Other)
  Sender: FDA-Public Use
  Company Number: IL-VALEANT-2012VX001802

PATIENT
  Age: 54 Year
  Sex: Male

DRUGS (2)
  1. FLUOROURACIL [Suspect]
     Dosage: DOSE UNIT:1000
     Route: 065
  2. CISPLATIN [Concomitant]
     Route: 065

REACTIONS (1)
  - RENAL FAILURE ACUTE [None]
